FAERS Safety Report 10380227 (Version 1)
Quarter: 2014Q3

REPORT INFORMATION
  Report Type: Spontaneous
  Country: GB (occurrence: GB)
  Receive Date: 20140813
  Receipt Date: 20140813
  Transmission Date: 20150326
  Serious: Yes (Other)
  Sender: FDA-Public Use
  Company Number: GB-BRISTOL-MYERS SQUIBB COMPANY-21272687

PATIENT
  Age: 67 Year
  Sex: Male
  Weight: 119 kg

DRUGS (8)
  1. GLUCOSAMINE [Concomitant]
     Active Substance: GLUCOSAMINE
  2. HYDROXYCHLOROQUINE [Concomitant]
     Active Substance: HYDROXYCHLOROQUINE
  3. DEVILS CLAW [Concomitant]
     Active Substance: HERBS\UNSPECIFIED INGREDIENT
  4. OLANZAPINE. [Concomitant]
     Active Substance: OLANZAPINE
  5. SERTRALINE [Concomitant]
     Active Substance: SERTRALINE HYDROCHLORIDE
  6. ABILIFY [Suspect]
     Active Substance: ARIPIPRAZOLE
     Indication: SCHIZOPHRENIA
     Route: 048
     Dates: start: 20140625, end: 20140630
  7. METHOTREXATE [Concomitant]
     Active Substance: METHOTREXATE
  8. SIMVASTATIN. [Concomitant]
     Active Substance: SIMVASTATIN

REACTIONS (9)
  - Hypersensitivity [Recovered/Resolved with Sequelae]
  - Gastrointestinal disorder [Recovered/Resolved with Sequelae]
  - Sleep disorder [Recovering/Resolving]
  - Abdominal pain [Unknown]
  - Arthritis [Recovering/Resolving]
  - Myalgia [Recovering/Resolving]
  - Nausea [Recovered/Resolved with Sequelae]
  - Affective disorder [Recovering/Resolving]
  - Decreased appetite [Unknown]

NARRATIVE: CASE EVENT DATE: 20140625
